FAERS Safety Report 12158069 (Version 1)
Quarter: 2016Q1

REPORT INFORMATION
  Report Type: Spontaneous
  Country: US (occurrence: US)
  Receive Date: 20160308
  Receipt Date: 20160308
  Transmission Date: 20160526
  Serious: No
  Sender: FDA-Public Use
  Company Number: US-JNJFOC-20150205552

PATIENT
  Age: 82 Year
  Sex: Male

DRUGS (14)
  1. DEXAMETHASONE. [Concomitant]
     Active Substance: DEXAMETHASONE
  2. OCUVITE [Concomitant]
     Active Substance: VITAMINS
  3. CALCIUM AND VIT D [Concomitant]
     Active Substance: CALCIUM\VITAMIN D
  4. CRESTOR [Concomitant]
     Active Substance: ROSUVASTATIN CALCIUM
  5. DOXYCYCLINE. [Concomitant]
     Active Substance: DOXYCYCLINE
  6. FISH OIL [Concomitant]
     Active Substance: FISH OIL
  7. BACTRIM DS [Concomitant]
     Active Substance: SULFAMETHOXAZOLE\TRIMETHOPRIM
  8. LASIX [Concomitant]
     Active Substance: FUROSEMIDE
  9. IMBRUVICA [Suspect]
     Active Substance: IBRUTINIB
     Indication: LYMPHOMA
     Route: 048
     Dates: start: 20141205
  10. DOCUSATE SODIUM. [Concomitant]
     Active Substance: DOCUSATE SODIUM
  11. VESICARE [Concomitant]
     Active Substance: SOLIFENACIN SUCCINATE
  12. TYLENOL 8 HOURS [Concomitant]
  13. ADVAIR DISKUS [Concomitant]
     Active Substance: FLUTICASONE PROPIONATE\SALMETEROL XINAFOATE
  14. ASPIRIN. [Concomitant]
     Active Substance: ASPIRIN

REACTIONS (8)
  - Candida infection [Recovering/Resolving]
  - Skin ulcer [Unknown]
  - Dizziness [Not Recovered/Not Resolved]
  - Muscle spasms [Unknown]
  - Diarrhoea [Not Recovered/Not Resolved]
  - Insomnia [Not Recovered/Not Resolved]
  - Dyspnoea [Not Recovered/Not Resolved]
  - Chest discomfort [Not Recovered/Not Resolved]

NARRATIVE: CASE EVENT DATE: 201412
